FAERS Safety Report 9114423 (Version 2)
Quarter: 2013Q1

REPORT INFORMATION
  Report Type: Spontaneous
  Country: US (occurrence: US)
  Receive Date: 20130208
  Receipt Date: 20130306
  Transmission Date: 20140127
  Serious: No
  Sender: FDA-Public Use
  Company Number: US-009507513-1302USA003653

PATIENT
  Age: 87 Year
  Sex: Female
  Weight: 72.56 kg

DRUGS (3)
  1. MIRALAX [Suspect]
     Indication: CONSTIPATION
     Dosage: UNK,
     Route: 048
     Dates: start: 201205, end: 201301
  2. LISINOPRIL [Concomitant]
     Indication: HYPERTENSION
  3. PREVACID [Concomitant]
     Indication: PRODUCT USED FOR UNKNOWN INDICATION

REACTIONS (2)
  - Alopecia [Not Recovered/Not Resolved]
  - Incorrect drug administration duration [Unknown]
